FAERS Safety Report 5342335-4 (Version None)
Quarter: 2007Q2

REPORT INFORMATION
  Report Type: 
  Country: None (occurrence: None)
  Receive Date: 20070416
  Receipt Date: 20070108
  Transmission Date: 20071010
  Serious: No
  Sender: FDA-Public Use
  Company Number: 2007SP000082

PATIENT
  Age: 41 Year
  Sex: Female
  Weight: 91.173 kg

DRUGS (4)
  1. LUNESTA [Suspect]
     Indication: INSOMNIA
     Dosage: 2 MG; ORAL
     Route: 048
     Dates: start: 20070107
  2. CYMBALTA [Concomitant]
  3. NOVOCAIN [Concomitant]
  4. INDOMETHACIN [Concomitant]

REACTIONS (4)
  - DYSGEUSIA [None]
  - INSOMNIA [None]
  - NAUSEA [None]
  - RETCHING [None]
